FAERS Safety Report 6490311-0 (Version None)
Quarter: 2009Q4

REPORT INFORMATION
  Report Type: 
  Country: None (occurrence: None)
  Receive Date: 20091124
  Receipt Date: 20081208
  Transmission Date: 20100525
  Serious: Yes (Hospitalization)
  Sender: FDA-Public Use
  Company Number: SPV1-2008-02681

PATIENT
  Age: 9 Year
  Sex: Male

DRUGS (2)
  1. CARBATROL [Suspect]
     Dosage: 150 MG, 3X/DAY;TID, ORAL
     Route: 048
  2. PHENOBARBITAL SRT [Concomitant]

REACTIONS (1)
  - TOXIC EPIDERMAL NECROLYSIS [None]
